FAERS Safety Report 8595879-6 (Version None)
Quarter: 2012Q3

REPORT INFORMATION
  Report Type: 
  Country: None (occurrence: None)
  Receive Date: 20120815
  Receipt Date: 20120807
  Transmission Date: 20120928
  Serious: Yes (Hospitalization, Other)
  Sender: FDA-Public Use
  Company Number: US-MYLANLABS-2012S1016000

PATIENT
  Age: 65 Year
  Sex: Male

DRUGS (1)
  1. CLOZAPINE [Suspect]
     Indication: SCHIZOPHRENIA
     Dates: end: 20120730

REACTIONS (3)
  - DEHYDRATION [None]
  - PNEUMONIA [None]
  - GRANULOCYTOPENIA [None]
